FAERS Safety Report 16567436 (Version 3)
Quarter: 2019Q4

REPORT INFORMATION
  Report Type: Spontaneous
  Country: US (occurrence: US)
  Receive Date: 20190712
  Receipt Date: 20191010
  Transmission Date: 20200122
  Serious: Yes (Other)
  Sender: FDA-Public Use
  Company Number: US-ASTRAZENECA-2019SE98063

PATIENT
  Age: 27916 Day
  Sex: Female
  Weight: 93 kg

DRUGS (36)
  1. FLEXERIL [Concomitant]
     Active Substance: CYCLOBENZAPRINE HYDROCHLORIDE
  2. LOSARTAN. [Concomitant]
     Active Substance: LOSARTAN
     Route: 065
  3. VALSARTAN. [Concomitant]
     Active Substance: VALSARTAN
     Route: 065
  4. CLOBETASOL [Concomitant]
     Active Substance: CLOBETASOL
     Route: 065
  5. AZITHROMYCIN ANHYDROUS. [Concomitant]
     Active Substance: AZITHROMYCIN ANHYDROUS
     Route: 065
  6. VENTOLIN HFA [Concomitant]
     Active Substance: ALBUTEROL SULFATE
     Route: 065
  7. TOBRAMYCIN. [Concomitant]
     Active Substance: TOBRAMYCIN
     Route: 065
  8. AMLODIPINE [Concomitant]
     Active Substance: AMLODIPINE BESYLATE
     Indication: BLOOD PRESSURE ABNORMAL
     Route: 065
  9. ESCITALOPRAM [Concomitant]
     Active Substance: ESCITALOPRAM OXALATE
     Route: 065
  10. MONTELUKAST [Concomitant]
     Active Substance: MONTELUKAST SODIUM
     Route: 065
  11. BENZONATATE. [Concomitant]
     Active Substance: BENZONATATE
     Route: 065
  12. FLUCONAZOLE. [Concomitant]
     Active Substance: FLUCONAZOLE
     Route: 065
  13. NASONEX [Concomitant]
     Active Substance: MOMETASONE FUROATE
     Route: 065
  14. PANTOPRAZOLE [Suspect]
     Active Substance: PANTOPRAZOLE
     Indication: GASTROOESOPHAGEAL REFLUX DISEASE
     Route: 065
     Dates: start: 20120731, end: 201208
  15. KETOCONAZOLE. [Concomitant]
     Active Substance: KETOCONAZOLE
     Route: 065
  16. LIDOCAINE. [Concomitant]
     Active Substance: LIDOCAINE
     Route: 065
  17. MARCAINE [Concomitant]
     Active Substance: BUPIVACAINE HYDROCHLORIDE
     Route: 065
  18. LEVOTHYROXINE. [Concomitant]
     Active Substance: LEVOTHYROXINE
  19. GENTAMICIN. [Concomitant]
     Active Substance: GENTAMICIN
     Route: 065
  20. ZEMPLAR [Concomitant]
     Active Substance: PARICALCITOL
     Route: 065
  21. PATANASE [Concomitant]
     Active Substance: OLOPATADINE HYDROCHLORIDE
  22. TIZANIDINE. [Concomitant]
     Active Substance: TIZANIDINE
     Route: 065
  23. COUMADIN [Concomitant]
     Active Substance: WARFARIN SODIUM
     Route: 065
  24. CIPROFLOXACIN. [Concomitant]
     Active Substance: CIPROFLOXACIN
     Route: 065
  25. EXFORGE [Concomitant]
     Active Substance: AMLODIPINE BESYLATE\VALSARTAN
  26. METOPROLOL. [Concomitant]
     Active Substance: METOPROLOL
     Route: 065
  27. FAMOTIDINE. [Concomitant]
     Active Substance: FAMOTIDINE
     Route: 065
  28. FERAHEME [Concomitant]
     Active Substance: FERUMOXYTOL NON-STOICHIOMETRIC MAGNETITE
     Route: 065
  29. NEXIUM [Suspect]
     Active Substance: ESOMEPRAZOLE MAGNESIUM
     Indication: GASTROOESOPHAGEAL REFLUX DISEASE
     Route: 048
     Dates: start: 2001, end: 2014
  30. KENALOG [Concomitant]
     Active Substance: TRIAMCINOLONE ACETONIDE
     Route: 065
  31. TETRACYCLINE [Concomitant]
     Active Substance: TETRACYCLINE
     Route: 065
  32. NEXIUM [Suspect]
     Active Substance: ESOMEPRAZOLE MAGNESIUM
     Indication: GASTROOESOPHAGEAL REFLUX DISEASE
     Route: 048
     Dates: start: 20010101, end: 20140101
  33. MULTIVITAMIN [Concomitant]
     Active Substance: VITAMINS
  34. SYNTHROID [Concomitant]
     Active Substance: LEVOTHYROXINE SODIUM
     Route: 065
  35. MUPIROCIN. [Concomitant]
     Active Substance: MUPIROCIN
     Route: 065
  36. PROPOFOL. [Concomitant]
     Active Substance: PROPOFOL
     Route: 065

REACTIONS (4)
  - Chronic kidney disease [Not Recovered/Not Resolved]
  - End stage renal disease [Unknown]
  - Hyperparathyroidism secondary [Unknown]
  - Nephrogenic anaemia [Unknown]

NARRATIVE: CASE EVENT DATE: 20110804
